FAERS Safety Report 5975925-6 (Version None)
Quarter: 2008Q4

REPORT INFORMATION
  Report Type: 
  Country: None (occurrence: None)
  Receive Date: 20081202
  Receipt Date: 20081126
  Transmission Date: 20090506
  Serious: Yes (Hospitalization)
  Sender: FDA-Public Use
  Company Number: DE-ROCHE-382335

PATIENT
  Sex: Male

DRUGS (15)
  1. RIBAVIRIN [Suspect]
     Route: 048
     Dates: start: 20040805, end: 20040930
  2. PEG-INTERFERON ALFA 2A (RO 25-8310) [Suspect]
     Route: 058
     Dates: start: 20040805, end: 20050706
  3. PLACEBO [Suspect]
     Route: 048
     Dates: start: 20040722, end: 20050706
  4. NOVORAPID [Concomitant]
     Dosage: DOSE 4-3-10 IE PER DAY.
     Route: 058
     Dates: start: 20020101
  5. LEVOTHYROXINE SODIUM [Concomitant]
     Dosage: REPORTED AS L-THYROX.
     Route: 048
     Dates: start: 19840101
  6. ASPIRIN [Concomitant]
     Route: 048
  7. PROVAS COMP [Concomitant]
     Route: 048
     Dates: start: 20040812
  8. UNKNOWN DRUG [Concomitant]
     Dosage: REPORTED AS GLIS.
     Route: 048
     Dates: start: 20020101
  9. UNIMAX [Concomitant]
     Indication: HYPERTONIA
  10. INSULIN NOVO [Concomitant]
  11. GLYBURIDE [Concomitant]
  12. ISOSORBIDE DINITRATE [Concomitant]
  13. CORVATON [Concomitant]
  14. BELOC MITE [Concomitant]
  15. SORTIS [Concomitant]

REACTIONS (2)
  - ANGINA PECTORIS [None]
  - CORONARY ARTERY DISEASE [None]
